FAERS Safety Report 6781113-6 (Version None)
Quarter: 2010Q2

REPORT INFORMATION
  Report Type: 
  Country: None (occurrence: None)
  Receive Date: 20100621
  Receipt Date: 20100604
  Transmission Date: 20101027
  Serious: Yes (Death, Hospitalization, Other)
  Sender: FDA-Public Use
  Company Number: JP-SANOFI-AVENTIS-2010SA018240

PATIENT
  Age: 80 Year
  Sex: Male

DRUGS (18)
  1. FLUDARABINE PHOSPHATE [Suspect]
     Route: 048
     Dates: start: 20100309, end: 20100311
  2. MEROPEN [Suspect]
     Indication: PNEUMONIA
     Route: 042
     Dates: start: 20100311, end: 20100315
  3. DIFLUCAN [Concomitant]
     Indication: INFECTION PROPHYLAXIS
     Route: 048
     Dates: start: 20100303, end: 20100310
  4. COTRIM [Concomitant]
     Indication: INFECTION PROPHYLAXIS
     Route: 048
     Dates: start: 20100305, end: 20100314
  5. BLOOD AND RELATED PRODUCTS [Concomitant]
     Indication: THROMBOCYTOPENIA
     Route: 042
     Dates: start: 20100310, end: 20100317
  6. RED BLOOD CELLS [Concomitant]
     Indication: ANAEMIA
     Route: 042
     Dates: start: 20100315, end: 20100316
  7. NEUTROGIN [Concomitant]
     Indication: NEUTROPENIA
     Route: 003
     Dates: start: 20100312, end: 20100321
  8. DECADRON [Concomitant]
     Indication: ACUTE STRESS DISORDER
     Route: 042
     Dates: start: 20100317, end: 20100321
  9. OMEPRAL [Concomitant]
     Route: 048
     Dates: start: 20100305, end: 20100316
  10. GASTER [Concomitant]
     Route: 042
     Dates: start: 20100317, end: 20100321
  11. LONGES [Concomitant]
     Indication: HYPERTENSION
     Route: 048
     Dates: start: 20100309, end: 20100321
  12. DIART [Concomitant]
     Route: 048
     Dates: start: 20100309, end: 20100321
  13. ARTIST [Concomitant]
     Indication: HYPERTENSION
     Route: 048
     Dates: start: 20100309, end: 20100321
  14. ALOSITOL [Concomitant]
     Indication: HYPERURICAEMIA
     Route: 048
     Dates: start: 20100309, end: 20100315
  15. HUMULIN R [Concomitant]
     Indication: DIABETES MELLITUS
     Route: 003
     Dates: start: 20100312, end: 20100321
  16. HUMULIN R [Concomitant]
     Route: 042
     Dates: start: 20100313, end: 20100321
  17. LASIX [Concomitant]
     Indication: CARDIAC FAILURE CONGESTIVE
     Route: 042
     Dates: start: 20100313, end: 20100313
  18. CYCLOPHOSPHAMIDE [Concomitant]

REACTIONS (7)
  - ACUTE STRESS DISORDER [None]
  - CARDIAC FAILURE CONGESTIVE [None]
  - CHRONIC LYMPHOCYTIC LEUKAEMIA [None]
  - ENTEROCOLITIS VIRAL [None]
  - HYPERURICAEMIA [None]
  - LIVER DISORDER [None]
  - PNEUMONIA [None]
